FAERS Safety Report 12421431 (Version 1)
Quarter: 2016Q2

REPORT INFORMATION
  Report Type: Other
  Country: US (occurrence: US)
  Receive Date: 20160531
  Receipt Date: 20160531
  Transmission Date: 20160815
  Serious: No
  Sender: FDA-Public Use
  Company Number: US-LEADING PHARMA-1052969

PATIENT
  Age: 33 Year
  Sex: Male
  Weight: 56.82 kg

DRUGS (1)
  1. LORAZEPAM. [Suspect]
     Active Substance: LORAZEPAM
     Route: 048

REACTIONS (1)
  - Muscle twitching [Not Recovered/Not Resolved]
